FAERS Safety Report 17951455 (Version 2)
Quarter: 2020Q3

REPORT INFORMATION
  Report Type: Report from Study
  Country: BD (occurrence: BD)
  Receive Date: 20200626
  Receipt Date: 20200701
  Transmission Date: 20201103
  Serious: Yes (Death, Hospitalization)
  Sender: FDA-Public Use
  Company Number: NVSC2020BD180286

PATIENT
  Age: 79 Year
  Sex: Female
  Weight: 59 kg

DRUGS (2)
  1. EXELON PATCH [Suspect]
     Active Substance: RIVASTIGMINE
     Indication: PRODUCT USED FOR UNKNOWN INDICATION
     Dosage: 10 OT, QD, (1 PATCH)
     Route: 062
     Dates: start: 2018, end: 2019
  2. EXELON PATCH [Suspect]
     Active Substance: RIVASTIGMINE
     Dosage: 10 OT, QD, (1 PATCH)
     Route: 062
     Dates: start: 20200101, end: 20200511

REACTIONS (3)
  - Dizziness [Recovering/Resolving]
  - Myocardial infarction [Fatal]
  - Blood pressure increased [Recovering/Resolving]

NARRATIVE: CASE EVENT DATE: 20200511
